FAERS Safety Report 11277415 (Version 1)
Quarter: 2015Q3

REPORT INFORMATION
  Report Type: Spontaneous
  Country: GB (occurrence: GB)
  Receive Date: 20150716
  Receipt Date: 20150716
  Transmission Date: 20151125
  Serious: Yes (Disabling)
  Sender: FDA-Public Use
  Company Number: GB-GLAXOSMITHKLINE-GB2015101781

PATIENT
  Age: 72 Year
  Sex: Female
  Weight: 55 kg

DRUGS (12)
  1. PREDNISOLONE. [Concomitant]
     Active Substance: PREDNISOLONE
     Dates: start: 20150608, end: 20150706
  2. CARMELLOSE SODIUM [Concomitant]
     Active Substance: CARBOXYMETHYLCELLULOSE SODIUM
     Dosage: 1-2 DROPS AS DIRECTED
     Dates: start: 20150408
  3. VENTOLIN [Concomitant]
     Active Substance: ALBUTEROL SULFATE
     Route: 055
     Dates: start: 20150305
  4. CLONAZEPAM. [Concomitant]
     Active Substance: CLONAZEPAM
     Dosage: AT NIGHT
     Dates: start: 20150305
  5. LOSARTAN. [Concomitant]
     Active Substance: LOSARTAN
     Dates: start: 20150305
  6. VAGIFEM [Concomitant]
     Active Substance: ESTRADIOL
     Dosage: USE AS DIRECTED
     Dates: start: 20150305
  7. ZOTON [Concomitant]
     Active Substance: LANSOPRAZOLE
     Dates: start: 20150305
  8. INCRUSE ELLIPTA [Suspect]
     Active Substance: UMECLIDINIUM BROMIDE
     Indication: HEADACHE
     Route: 055
     Dates: start: 20150615, end: 20150620
  9. AMOXICILLIN. [Concomitant]
     Active Substance: AMOXICILLIN
     Dates: start: 20150608, end: 20150622
  10. RELVAR ELLIPTA [Concomitant]
     Active Substance: FLUTICASONE FUROATE\VILANTEROL TRIFENATATE
     Route: 055
     Dates: start: 20150608, end: 20150615
  11. SERETIDE [Concomitant]
     Active Substance: FLUTICASONE FUROATE\SALMETEROL XINAFOATE
     Route: 055
     Dates: start: 20150402, end: 20150608
  12. QUININE [Concomitant]
     Active Substance: QUININE
     Dosage: AT NIGHT
     Dates: start: 20150608

REACTIONS (3)
  - Drug intolerance [Unknown]
  - Nausea [Recovered/Resolved with Sequelae]
  - Headache [Recovered/Resolved with Sequelae]

NARRATIVE: CASE EVENT DATE: 20150615
